FAERS Safety Report 7820738-3 (Version None)
Quarter: 2011Q4

REPORT INFORMATION
  Report Type: 
  Country: None (occurrence: None)
  Receive Date: 20111018
  Receipt Date: 20111013
  Transmission Date: 20120403
  Serious: Yes (Hospitalization)
  Sender: FDA-Public Use
  Company Number: IE-B.I. PHARMACEUTICALS,INC./RIDGEFIELD-2011-UK-00855UK

PATIENT
  Sex: Female
  Weight: 78 kg

DRUGS (5)
  1. PRADAXA [Suspect]
     Indication: HIP ARTHROPLASTY
  2. PANTOPRAZOLE [Concomitant]
     Dosage: 20 MG
     Dates: start: 20110408, end: 20110413
  3. PRADAXA [Suspect]
     Indication: THROMBOSIS PROPHYLAXIS
     Dosage: 220 MG
     Route: 048
     Dates: start: 20110407, end: 20110423
  4. DICLOFENAC SODIUM [Concomitant]
     Dosage: 100 MG
     Dates: start: 20110408, end: 20110413
  5. ACETAMINOPHEN W/ CODEINE [Concomitant]
     Dates: start: 20110411, end: 20110413

REACTIONS (1)
  - DEEP VEIN THROMBOSIS [None]
